FAERS Safety Report 5831710-7 (Version None)
Quarter: 2008Q3

REPORT INFORMATION
  Report Type: 
  Country: None (occurrence: None)
  Receive Date: 20080803
  Receipt Date: 20080721
  Transmission Date: 20090109
  Serious: Yes (Death, Disabling, Other)
  Sender: FDA-Public Use
  Company Number: PHHY2008FR15613

PATIENT
  Sex: Female

DRUGS (11)
  1. ZOMETA [Suspect]
     Indication: METASTASES TO BONE
     Dosage: 4 MG, QMO
     Dates: start: 20060928, end: 20080526
  2. SOLU-MEDROL [Concomitant]
     Route: 042
  3. GEMZAR [Concomitant]
  4. CISPLATIN [Concomitant]
  5. FOLFIRI [Concomitant]
  6. ETOPOSIDE [Concomitant]
  7. NAVELBINE [Concomitant]
  8. ENDOXAN [Concomitant]
     Dosage: UNK
     Dates: start: 20071101, end: 20080201
  9. METHOTREXATE [Concomitant]
     Dosage: UNK
     Dates: start: 20071101, end: 20080201
  10. SUTENT [Concomitant]
  11. RADIOTHERAPY [Concomitant]
     Indication: METASTASES TO BONE
     Dosage: UNK
     Dates: start: 20060901

REACTIONS (14)
  - DEATH [None]
  - HYPOAESTHESIA ORAL [None]
  - IMPAIRED HEALING [None]
  - OSTEOLYSIS [None]
  - OSTEONECROSIS [None]
  - PAIN IN JAW [None]
  - PARAESTHESIA [None]
  - PARAESTHESIA ORAL [None]
  - POST PROCEDURAL DISCHARGE [None]
  - PURULENT DISCHARGE [None]
  - TOOTH ABSCESS [None]
  - TOOTH DISORDER [None]
  - TOOTH EXTRACTION [None]
  - X-RAY DENTAL [None]
